FAERS Safety Report 4461761-9 (Version None)
Quarter: 2004Q3

REPORT INFORMATION
  Report Type: 
  Country: None (occurrence: None)
  Receive Date: 20040929
  Receipt Date: 20031010
  Transmission Date: 20050211
  Serious: No
  Sender: FDA-Public Use
  Company Number: US-GLAXOSMITHKLINE-A0429824A

PATIENT
  Sex: Female

DRUGS (3)
  1. SEREVENT [Suspect]
     Dosage: 50MCG TWICE PER DAY
     Route: 055
     Dates: start: 20030909
  2. SYNTHROID [Concomitant]
  3. COMBIVENT [Concomitant]

REACTIONS (5)
  - DYSGEUSIA [None]
  - HEADACHE [None]
  - HYPERTENSION [None]
  - PARAESTHESIA ORAL [None]
  - PHARYNGOLARYNGEAL PAIN [None]
